FAERS Safety Report 10182540 (Version 1)
Quarter: 2014Q2

REPORT INFORMATION
  Report Type: Spontaneous
  Country: US (occurrence: None)
  Receive Date: 20140519
  Receipt Date: 20140519
  Transmission Date: 20141212
  Serious: No
  Sender: FDA-Public Use
  Company Number: None

PATIENT
  Age: 58 Year
  Sex: Male
  Weight: 112.95 kg

DRUGS (1)
  1. RITUXIMAB 10 MG/ML GENENTECH USA [Suspect]
     Indication: NON-HODGKIN^S LYMPHOMA
     Dosage: 900 MG D1 EACH CYCLE INTRAVENOUS
     Route: 042
     Dates: start: 20140515

REACTIONS (1)
  - Sensation of foreign body [None]
